FAERS Safety Report 11567969 (Version 2)
Quarter: 2015Q4

REPORT INFORMATION
  Report Type: Report from Study
  Country: FR (occurrence: FR)
  Receive Date: 20150929
  Receipt Date: 20151016
  Transmission Date: 20160304
  Serious: Yes (Death, Other)
  Sender: FDA-Public Use
  Company Number: FR-BRISTOL-MYERS SQUIBB COMPANY-BMS-2015-052222

PATIENT
  Age: 61 Year
  Sex: Male
  Weight: 65 kg

DRUGS (3)
  1. NIVOLUMAB [Suspect]
     Active Substance: NIVOLUMAB
     Indication: NON-SMALL CELL LUNG CANCER
     Dosage: 195 MG, UNK
     Route: 065
     Dates: start: 20150622
  2. NIVOLUMAB [Suspect]
     Active Substance: NIVOLUMAB
     Dosage: 195 MG, UNK
     Route: 065
     Dates: start: 20150729
  3. NIVOLUMAB [Suspect]
     Active Substance: NIVOLUMAB
     Dosage: 180 MG, UNK
     Route: 065
     Dates: start: 20150818

REACTIONS (8)
  - Neutrophil count abnormal [Recovered/Resolved]
  - Blood bilirubin abnormal [Unknown]
  - Haemoglobin abnormal [Recovered/Resolved]
  - Septic shock [Fatal]
  - White blood cell disorder [Recovered/Resolved]
  - Lung infection [Fatal]
  - Blood alkaline phosphatase abnormal [Unknown]
  - Lymphocyte count abnormal [Recovered/Resolved]

NARRATIVE: CASE EVENT DATE: 20150724
